FAERS Safety Report 20894202 (Version 2)
Quarter: 2022Q2

REPORT INFORMATION
  Report Type: Spontaneous
  Country: GB (occurrence: None)
  Receive Date: 20220531
  Receipt Date: 20220603
  Transmission Date: 20220721
  Serious: Yes (Other)
  Sender: FDA-Public Use
  Company Number: GB-ROCHE-3103838

PATIENT
  Sex: Male
  Weight: 64.95 kg

DRUGS (2)
  1. HERCEPTIN [Suspect]
     Active Substance: TRASTUZUMAB
     Indication: Adenocarcinoma of salivary gland
     Route: 042
     Dates: start: 20210824
  2. PERJETA [Suspect]
     Active Substance: PERTUZUMAB
     Indication: Adenocarcinoma of salivary gland
     Route: 042
     Dates: start: 20210824

REACTIONS (1)
  - Disease progression [Not Recovered/Not Resolved]

NARRATIVE: CASE EVENT DATE: 20220506
